FAERS Safety Report 17920587 (Version 2)
Quarter: 2020Q3

REPORT INFORMATION
  Report Type: Report from Study
  Country: US (occurrence: US)
  Receive Date: 20200621
  Receipt Date: 20200827
  Transmission Date: 20201103
  Serious: Yes (Hospitalization, Other)
  Sender: FDA-Public Use
  Company Number: US-BIOGEN-2020BI00886695

PATIENT
  Sex: Male
  Weight: 40.86 kg

DRUGS (2)
  1. TYSABRI [Suspect]
     Active Substance: NATALIZUMAB
     Route: 065
     Dates: end: 20200226
  2. TYSABRI [Suspect]
     Active Substance: NATALIZUMAB
     Indication: MULTIPLE SCLEROSIS
     Route: 065
     Dates: start: 20141215, end: 20150930

REACTIONS (5)
  - General physical health deterioration [Unknown]
  - Drug ineffective [Unknown]
  - Aphasia [Unknown]
  - Oxygen saturation decreased [Unknown]
  - Weight decreased [Unknown]
